FAERS Safety Report 25335884 (Version 1)
Quarter: 2025Q2

REPORT INFORMATION
  Report Type: Spontaneous
  Country: IN (occurrence: IN)
  Receive Date: 20250520
  Receipt Date: 20250520
  Transmission Date: 20250717
  Serious: Yes (Death, Other)
  Sender: STRIDES
  Company Number: IN-STRIDES ARCOLAB LIMITED-2025SP006058

PATIENT
  Age: 63 Year
  Sex: Male

DRUGS (5)
  1. ETOPOSIDE [Suspect]
     Active Substance: ETOPOSIDE
     Indication: Plasmablastic lymphoma
     Route: 065
  2. PREDNISOLONE [Suspect]
     Active Substance: PREDNISOLONE
     Indication: Plasmablastic lymphoma
     Route: 065
  3. DOXORUBICIN [Suspect]
     Active Substance: DOXORUBICIN
     Indication: Plasmablastic lymphoma
     Route: 065
  4. VINCRISTINE [Suspect]
     Active Substance: VINCRISTINE
     Indication: Plasmablastic lymphoma
     Route: 065
  5. CYCLOPHOSPHAMIDE [Suspect]
     Active Substance: CYCLOPHOSPHAMIDE
     Indication: Plasmablastic lymphoma
     Route: 065

REACTIONS (3)
  - Condition aggravated [Fatal]
  - Drug ineffective [Fatal]
  - Multiple organ dysfunction syndrome [Unknown]
